FAERS Safety Report 16572814 (Version 1)
Quarter: 2019Q3

REPORT INFORMATION
  Report Type: Spontaneous
  Country: DE (occurrence: DE)
  Receive Date: 20190715
  Receipt Date: 20190715
  Transmission Date: 20191004
  Serious: Yes (Hospitalization)
  Sender: FDA-Public Use
  Company Number: DE-TEVA-2019-DE-1076698

PATIENT
  Age: 19 Year
  Sex: Female

DRUGS (2)
  1. LORATADINE. [Suspect]
     Active Substance: LORATADINE
     Dosage: 10 MG, 1-0-0-0
     Route: 065
  2. ESCITALOPRAM [Suspect]
     Active Substance: ESCITALOPRAM OXALATE
     Dosage: 20 MG, 1-0-0-0
     Route: 065

REACTIONS (5)
  - Headache [Unknown]
  - Syncope [Unknown]
  - Seizure [Unknown]
  - Product prescribing error [Unknown]
  - Insomnia [Unknown]
